FAERS Safety Report 9851020 (Version 2)
Quarter: 2014Q1

REPORT INFORMATION
  Report Type: Spontaneous
  Country: JP (occurrence: JP)
  Receive Date: 20140128
  Receipt Date: 20140204
  Transmission Date: 20141002
  Serious: Yes (Other)
  Sender: FDA-Public Use
  Company Number: JP-B.I. PHARMACEUTICALS,INC./RIDGEFIELD-2014-BI-03630YA

PATIENT
  Age: 74 Year
  Sex: Male

DRUGS (5)
  1. HARNAL (TAMSULOSIN) ORODISPERSABLE CR [Suspect]
     Indication: BENIGN PROSTATIC HYPERPLASIA
     Dosage: FORMULATION: ORODISPERSIBLE CR TABLET
     Route: 048
  2. AMLODIPINE BESILATE [Concomitant]
     Route: 048
  3. CRESTOR (ROSUVASTATIN CALCIUM) [Concomitant]
  4. PENTASA (MESALAZINE) [Concomitant]
  5. PARIET (RABEPRAZOLE SODIUM) [Concomitant]

REACTIONS (1)
  - Fall [Recovered/Resolved]
